FAERS Safety Report 6230046-2 (Version None)
Quarter: 2009Q2

REPORT INFORMATION
  Report Type: 
  Country: None (occurrence: None)
  Receive Date: 20090615
  Receipt Date: 20090601
  Transmission Date: 20091009
  Serious: Yes (Death, Congenital Anomaly)
  Sender: FDA-Public Use
  Company Number: GB-MYLANLABS-2009S1009752

PATIENT
  Sex: Female
  Weight: 2.6 kg

DRUGS (4)
  1. TAMOXIFEN CITRATE [Suspect]
     Indication: DRUG USE FOR UNKNOWN INDICATION
     Route: 064
  2. GOSERELIN [Suspect]
     Indication: DRUG USE FOR UNKNOWN INDICATION
     Route: 064
  3. TRASTUZUMAB [Suspect]
     Indication: DRUG USE FOR UNKNOWN INDICATION
     Route: 064
  4. TRASTUZUMAB [Suspect]

REACTIONS (6)
  - ATELECTASIS [None]
  - CAESAREAN SECTION [None]
  - DRUG EXPOSURE DURING PREGNANCY [None]
  - GENERAL PHYSICAL HEALTH DETERIORATION [None]
  - OLIGOHYDRAMNIOS [None]
  - PULMONARY HYPOPLASIA [None]
